FAERS Safety Report 9143805 (Version 1)
Quarter: 2013Q1

REPORT INFORMATION
  Report Type: Report from Study
  Country: CA (occurrence: CA)
  Receive Date: 20130306
  Receipt Date: 20130306
  Transmission Date: 20140127
  Serious: Yes (Death, Other)
  Sender: FDA-Public Use
  Company Number: CA-ROCHE-1197414

PATIENT
  Sex: 0

DRUGS (4)
  1. AVASTIN [Suspect]
     Indication: COLORECTAL CANCER
     Route: 065
     Dates: start: 20120509, end: 20120816
  2. 5-FLUOROURACIL [Suspect]
     Indication: COLORECTAL CANCER
     Route: 065
     Dates: start: 20120509, end: 20120816
  3. LEUCOVORIN [Suspect]
     Indication: COLORECTAL CANCER
     Route: 065
     Dates: start: 20120509, end: 20120816
  4. OXALIPLATIN [Suspect]
     Indication: COLORECTAL CANCER
     Route: 065
     Dates: start: 20120509, end: 20120816

REACTIONS (2)
  - Disease progression [Unknown]
  - Death [Fatal]
